FAERS Safety Report 13073589 (Version 1)
Quarter: 2016Q4

REPORT INFORMATION
  Report Type: Spontaneous
  Country: US (occurrence: US)
  Receive Date: 20161229
  Receipt Date: 20161229
  Transmission Date: 20170207
  Serious: No
  Sender: FDA-Public Use
  Company Number: US-MYLANLABS-2016M1028942

PATIENT

DRUGS (1)
  1. LEVETIRACETAM IN SODIUM CHLORIDE INJECTION [Suspect]
     Active Substance: LEVETIRACETAM
     Dosage: 500 MG, UNK
     Route: 042

REACTIONS (3)
  - Injection site swelling [Unknown]
  - Injection site erythema [Unknown]
  - Wrong technique in product usage process [Unknown]
